FAERS Safety Report 6581301-8 (Version None)
Quarter: 2010Q1

REPORT INFORMATION
  Report Type: 
  Country: None (occurrence: None)
  Receive Date: 20100215
  Receipt Date: 20100208
  Transmission Date: 20100710
  Serious: Yes (Other)
  Sender: FDA-Public Use
  Company Number: FR-BRISTOL-MYERS SQUIBB COMPANY-14975643

PATIENT
  Age: 61 Year
  Sex: Female

DRUGS (2)
  1. APROVEL TABS 150 MG [Suspect]
     Indication: HYPERTENSION
     Route: 048
  2. TAHOR [Concomitant]

REACTIONS (1)
  - PANCREATITIS ACUTE [None]
